FAERS Safety Report 6522234-2 (Version None)
Quarter: 2009Q4

REPORT INFORMATION
  Report Type: 
  Country: None (occurrence: None)
  Receive Date: 20091229
  Receipt Date: 20091229
  Transmission Date: 20100525
  Serious: No
  Sender: FDA-Public Use
  Company Number: None

PATIENT
  Age: 74 Year
  Sex: Male
  Weight: 66.5 kg

DRUGS (6)
  1. LIDOCAINE [Suspect]
     Indication: VENTRICULAR TACHYCARDIA
     Dosage: 3MG/MIN IV
     Route: 042
     Dates: start: 20091001, end: 20091002
  2. ASPIRIN [Concomitant]
  3. ISMN [Concomitant]
  4. METOPROLOL TARTRATE [Concomitant]
  5. LEVOTHYROXINE SODIUM [Concomitant]
  6. HEP SQ [Concomitant]

REACTIONS (4)
  - CARDIAC FAILURE CONGESTIVE [None]
  - CONDITION AGGRAVATED [None]
  - MENTAL IMPAIRMENT [None]
  - NAUSEA [None]
